FAERS Safety Report 9161129 (Version 1)
Quarter: 2013Q1

REPORT INFORMATION
  Report Type: Spontaneous
  Country: US (occurrence: US)
  Receive Date: 20130313
  Receipt Date: 20130313
  Transmission Date: 20140127
  Serious: Yes (Hospitalization)
  Sender: FDA-Public Use
  Company Number: US-MILLENNIUM PHARMACEUTICALS, INC.-2013-01941

PATIENT
  Sex: Male
  Weight: 88.88 kg

DRUGS (1)
  1. VELCADE [Suspect]
     Indication: PLASMA CELL MYELOMA
     Dosage: 2.1 MG, UNK
     Route: 058

REACTIONS (4)
  - Blood pressure abnormal [Unknown]
  - Sepsis [Unknown]
  - Pyrexia [Unknown]
  - Chills [Unknown]
